FAERS Safety Report 8992086 (Version 1)
Quarter: 2012Q4

REPORT INFORMATION
  Report Type: 
  Country: FR (occurrence: FR)
  Receive Date: 20121231
  Receipt Date: 20121231
  Transmission Date: 20130627
  Serious: Yes (Hospitalization)
  Sender: FDA-Public Use
  Company Number: FR-ABBOTT-12P-056-1027106-00

PATIENT
  Age: 16 Year
  Sex: Male

DRUGS (5)
  1. ZECLAR [Suspect]
     Indication: FEBRILE BONE MARROW APLASIA
     Route: 048
     Dates: start: 20110926, end: 20110929
  2. VANCOMYCIN MYLAN [Suspect]
     Indication: FEBRILE BONE MARROW APLASIA
     Route: 048
  3. AMIKACIN [Suspect]
     Indication: FEBRILE BONE MARROW APLASIA
     Dates: start: 20110925, end: 20110930
  4. PIPERACILLINE/TAZOBACTAM [Suspect]
     Indication: FEBRILE BONE MARROW APLASIA
     Route: 048
     Dates: start: 20110925, end: 20110930
  5. GRANOCYTE [Concomitant]
     Indication: FEBRILE BONE MARROW APLASIA
     Route: 042

REACTIONS (7)
  - Renal failure acute [Recovered/Resolved]
  - Nausea [None]
  - Diarrhoea [None]
  - Back pain [None]
  - Renal tubular necrosis [None]
  - Astrovirus test positive [None]
  - Dehydration [None]
